FAERS Safety Report 18161698 (Version 1)
Quarter: 2020Q3

REPORT INFORMATION
  Report Type: Spontaneous
  Country: CN (occurrence: CN)
  Receive Date: 20200817
  Receipt Date: 20200817
  Transmission Date: 20201103
  Serious: Yes (Death, Other)
  Sender: FDA-Public Use
  Company Number: CN-ROCHE-2657014

PATIENT
  Age: 66 Year
  Sex: Male
  Weight: 61 kg

DRUGS (8)
  1. OSIMERTINIB MESYLATE. [Concomitant]
     Active Substance: OSIMERTINIB MESYLATE
     Indication: LUNG ADENOCARCINOMA
     Route: 048
     Dates: start: 20180605
  2. GEFITINIB. [Concomitant]
     Active Substance: GEFITINIB
     Route: 048
     Dates: start: 20171216, end: 20180605
  3. CATEQUENTINIB. [Concomitant]
     Active Substance: CATEQUENTINIB
     Dosage: EVERY ANOTHER DAY
     Route: 048
     Dates: start: 20180902, end: 20180925
  4. CATEQUENTINIB. [Concomitant]
     Active Substance: CATEQUENTINIB
     Route: 048
     Dates: start: 20180619
  5. PEMETREXED. [Concomitant]
     Active Substance: PEMETREXED
     Indication: LUNG ADENOCARCINOMA
     Dosage: ON DAY 1
     Dates: start: 20180411
  6. ZOLEDRONIC ACID [Concomitant]
     Active Substance: ZOLEDRONIC ACID
     Dates: start: 20180411
  7. BEVACIZUMAB. [Suspect]
     Active Substance: BEVACIZUMAB
     Indication: LUNG ADENOCARCINOMA
     Route: 065
     Dates: start: 20170526
  8. GEFITINIB. [Concomitant]
     Active Substance: GEFITINIB
     Indication: LUNG ADENOCARCINOMA
     Route: 048
     Dates: start: 20160513

REACTIONS (9)
  - Somnolence [Unknown]
  - Asthenia [Unknown]
  - Confusional state [Unknown]
  - Death [Fatal]
  - Rash [Unknown]
  - Respiratory failure [Unknown]
  - Haemangioma [Unknown]
  - Protein urine [Unknown]
  - Haemoglobin decreased [Unknown]

NARRATIVE: CASE EVENT DATE: 2018
